FAERS Safety Report 22201462 (Version 1)
Quarter: 2023Q2

REPORT INFORMATION
  Report Type: Spontaneous
  Country: US (occurrence: None)
  Receive Date: 20230411
  Receipt Date: 20230411
  Transmission Date: 20230721
  Serious: Yes (Other)
  Sender: FDA-Public Use
  Company Number: None

PATIENT
  Age: 23 Year
  Sex: Female
  Weight: 49.14 kg

DRUGS (3)
  1. CAFFEINE [Suspect]
     Active Substance: CAFFEINE
     Indication: Product used for unknown indication
  2. TARINA FE 1/20 [Concomitant]
     Active Substance: ETHINYL ESTRADIOL\NORETHINDRONE ACETATE
  3. Women^s multivitamin [Concomitant]

REACTIONS (5)
  - Heart rate increased [None]
  - Hyperhidrosis [None]
  - Insomnia [None]
  - Dyspnoea [None]
  - Accidental exposure to product [None]

NARRATIVE: CASE EVENT DATE: 20220708
